FAERS Safety Report 5233289-X (Version None)
Quarter: 2007Q1

REPORT INFORMATION
  Report Type: 
  Country: None (occurrence: None)
  Receive Date: 20070206
  Receipt Date: 20070129
  Transmission Date: 20070707
  Serious: Yes (Hospitalization)
  Sender: FDA-Public Use
  Company Number: 235809

PATIENT
  Age: 58 Year
  Sex: Female

DRUGS (6)
  1. XOLAIR [Suspect]
     Indication: DRUG USE FOR UNKNOWN INDICATION
     Dosage: 375 MG, SUBCUTANEOUS
     Route: 058
     Dates: start: 20070126
  2. ALLEGRA [Concomitant]
  3. CLARITIN [Concomitant]
  4. SINGULAIR [Concomitant]
  5. ADVAIR (FLUTICASONE PROPIONAE, SALMETEROL XINAFOATE) [Concomitant]
  6. PRILOSEC (OMPEPRAZOLE) [Concomitant]

REACTIONS (6)
  - ASTHMA [None]
  - BLOOD IMMUNOGLOBULIN E INCREASED [None]
  - CONDITION AGGRAVATED [None]
  - HYPERSENSITIVITY [None]
  - INJECTION SITE RASH [None]
  - RASH [None]
